FAERS Safety Report 8386406-7 (Version None)
Quarter: 2012Q2

REPORT INFORMATION
  Report Type: 
  Country: None (occurrence: None)
  Receive Date: 20120525
  Receipt Date: 20120517
  Transmission Date: 20120825
  Serious: Yes (Hospitalization, Disabling, Other)
  Sender: FDA-Public Use
  Company Number: US-JNJFOC-20120307125

PATIENT
  Sex: Male
  Weight: 92.99 kg

DRUGS (2)
  1. BLOOD PRESSURE MEDICATION NOS [Suspect]
     Indication: BLOOD PRESSURE
  2. XARELTO [Suspect]
     Indication: ATRIAL FIBRILLATION
     Route: 048
     Dates: start: 20120101, end: 20120201

REACTIONS (4)
  - MYALGIA [None]
  - PRURITUS GENERALISED [None]
  - ERYTHEMA [None]
  - ASTHENIA [None]
